FAERS Safety Report 25383594 (Version 1)
Quarter: 2025Q2

REPORT INFORMATION
  Report Type: Spontaneous
  Country: US (occurrence: US)
  Receive Date: 20250602
  Receipt Date: 20250602
  Transmission Date: 20250717
  Serious: Yes (Other)
  Sender: COOPERSURGICAL
  Company Number: US-COOPERSURGICAL, INC.-2025CPS004363

PATIENT
  Age: 38 Year
  Sex: Female
  Weight: 121.54 kg

DRUGS (2)
  1. PARAGARD T 380A [Suspect]
     Active Substance: COPPER
     Indication: Contraception
     Route: 015
     Dates: start: 20110118
  2. ALBUTEROL [Concomitant]
     Active Substance: ALBUTEROL
     Dates: start: 201101, end: 201812

REACTIONS (7)
  - Salpingo-oophorectomy unilateral [Recovered/Resolved]
  - Reproductive complication associated with device [Not Recovered/Not Resolved]
  - Pelvic pain [Recovered/Resolved]
  - Device breakage [Not Recovered/Not Resolved]
  - Foreign body in reproductive tract [Not Recovered/Not Resolved]
  - Complication of device removal [Not Recovered/Not Resolved]
  - Depression [Unknown]

NARRATIVE: CASE EVENT DATE: 20180911
